FAERS Safety Report 6453613-X (Version None)
Quarter: 2009Q4

REPORT INFORMATION
  Report Type: 
  Country: None (occurrence: None)
  Receive Date: 20091124
  Receipt Date: 20091117
  Transmission Date: 20100525
  Serious: Yes (Death, Hospitalization, Other)
  Sender: FDA-Public Use
  Company Number: US-PFIZER INC-2009288189

PATIENT
  Sex: Male
  Weight: 126.98 kg

DRUGS (6)
  1. LYRICA [Suspect]
     Indication: BACK PAIN
     Dosage: 50 MG, 1X/DAY
     Route: 048
     Dates: start: 20090101
  2. LYRICA [Suspect]
     Indication: PAIN MANAGEMENT
  3. COUMADIN [Concomitant]
     Indication: BLOOD DISORDER
  4. DILANTIN [Concomitant]
  5. VICODIN [Concomitant]
  6. OXYMORPHONE [Concomitant]
     Dosage: 40 MG, 3X/DAY

REACTIONS (12)
  - CHEST DISCOMFORT [None]
  - DEATH [None]
  - DYSPNOEA [None]
  - HEADACHE [None]
  - LOCAL SWELLING [None]
  - MYOCARDIAL INFARCTION [None]
  - OEDEMA [None]
  - OEDEMA PERIPHERAL [None]
  - PAIN [None]
  - PARAESTHESIA [None]
  - PERICARDIAL DRAINAGE [None]
  - SWELLING FACE [None]
